FAERS Safety Report 8919414 (Version 1)
Quarter: 2012Q4

REPORT INFORMATION
  Report Type: 
  Country: US (occurrence: US)
  Receive Date: 20121121
  Receipt Date: 20121121
  Transmission Date: 20130627
  Serious: No
  Sender: FDA-Public Use
  Company Number: US-PFIZER INC-2012287895

PATIENT
  Age: 52 Year
  Sex: Female

DRUGS (2)
  1. BOSULIF [Suspect]
     Indication: CHRONIC MYELOID LEUKEMIA
     Dosage: 500 mg, UNK
     Dates: start: 20121012
  2. WARFARIN [Concomitant]

REACTIONS (2)
  - Abdominal discomfort [Unknown]
  - Diarrhoea [Unknown]
